FAERS Safety Report 6761720-7 (Version None)
Quarter: 2010Q2

REPORT INFORMATION
  Report Type: 
  Country: None (occurrence: None)
  Receive Date: 20100421
  Receipt Date: 20100412
  Transmission Date: 20101027
  Serious: Yes (Other)
  Sender: FDA-Public Use
  Company Number: AECAN201000113

PATIENT
  Age: 77 Year
  Sex: Male
  Weight: 97 kg

DRUGS (20)
  1. GAMUNEX [Suspect]
     Indication: MYASTHENIA GRAVIS
     Dosage: 40 GM; QD; IV
     Route: 042
     Dates: start: 20100331, end: 20100404
  2. PRIVIGEN (NO PREF. NAME) (10 PCT) [Suspect]
     Indication: MYASTHENIA GRAVIS
     Dosage: 40 GM; QD; IV
     Route: 042
     Dates: start: 20100331, end: 20100404
  3. FELODIPINE [Concomitant]
  4. MORPHINE [Concomitant]
  5. ACETAMINOPHEN [Concomitant]
  6. HYDROMORPHONE HCL [Concomitant]
  7. HEPARIN [Concomitant]
  8. PREDNISONE [Concomitant]
  9. LORAZEPAM [Concomitant]
  10. DIMENHYDRINATE [Concomitant]
  11. FUROSEMIDE [Concomitant]
  12. VITAMIN D /00318501/ [Concomitant]
  13. PROBENECID [Concomitant]
  14. CALCIUM CARBONATE [Concomitant]
  15. PYRIDOSTIGMINE BROMIDE [Concomitant]
  16. SALBUTAMOL [Concomitant]
  17. IPRATROPIUM [Concomitant]
  18. SIMVASTATIN [Concomitant]
  19. FLUTICASONE [Concomitant]
  20. CEFTRIAXONE [Concomitant]

REACTIONS (1)
  - HAEMOGLOBIN DECREASED [None]
